FAERS Safety Report 14355749 (Version 2)
Quarter: 2018Q1

REPORT INFORMATION
  Report Type: Report from Study
  Country: US (occurrence: US)
  Receive Date: 20180105
  Receipt Date: 20180110
  Transmission Date: 20180509
  Serious: Yes (Other)
  Sender: FDA-Public Use
  Company Number: US-JNJFOC-20180104523

PATIENT
  Sex: Male

DRUGS (21)
  1. CLARITIN [Concomitant]
     Active Substance: LORATADINE
  2. BENAZEPRIL [Concomitant]
     Active Substance: BENAZEPRIL HYDROCHLORIDE
  3. LASIX [Concomitant]
     Active Substance: FUROSEMIDE
  4. METOPROLOL. [Concomitant]
     Active Substance: METOPROLOL
  5. OXYCODONE [Concomitant]
     Active Substance: OXYCODONE
  6. ROLAPITANT HYDROCHLORIDE [Concomitant]
     Active Substance: ROLAPITANT
  7. ACYCLOVIR. [Concomitant]
     Active Substance: ACYCLOVIR
  8. NYSTATIN. [Concomitant]
     Active Substance: NYSTATIN
  9. PYRIDIUM [Concomitant]
     Active Substance: PHENAZOPYRIDINE
  10. ULTRAM [Concomitant]
     Active Substance: TRAMADOL HYDROCHLORIDE
  11. MAALOX ANTACID [Concomitant]
     Active Substance: ALUMINUM HYDROXIDE\DIMETHICONE\MAGNESIUM HYDROXIDE
  12. ALLOPURINOL. [Concomitant]
     Active Substance: ALLOPURINOL
  13. FENOFIBRATE. [Concomitant]
     Active Substance: FENOFIBRATE
  14. OMEPRAZOLE. [Concomitant]
     Active Substance: OMEPRAZOLE
  15. SIMVASTATIN. [Concomitant]
     Active Substance: SIMVASTATIN
  16. COMPAZINE [Concomitant]
     Active Substance: PROCHLORPERAZINE MALEATE
  17. AMLODIPINE [Concomitant]
     Active Substance: AMLODIPINE BESYLATE
  18. ALFUZOSIN [Concomitant]
     Active Substance: ALFUZOSIN
  19. LIDOCAINE. [Concomitant]
     Active Substance: LIDOCAINE
  20. BENADRYL [Concomitant]
     Active Substance: DIPHENHYDRAMINE HYDROCHLORIDE
  21. IMBRUVICA [Suspect]
     Active Substance: IBRUTINIB
     Indication: MANTLE CELL LYMPHOMA
     Route: 048
     Dates: start: 20161219

REACTIONS (1)
  - Cerebral haemorrhage [Recovered/Resolved]
